FAERS Safety Report 19099362 (Version 3)
Quarter: 2021Q3

REPORT INFORMATION
  Report Type: Spontaneous
  Country: JP (occurrence: JP)
  Receive Date: 20210406
  Receipt Date: 20210802
  Transmission Date: 20211014
  Serious: Yes (Life-Threatening, Hospitalization, Disabling, Other)
  Sender: FDA-Public Use
  Company Number: JP-ASTRAZENECA-2021A256465

PATIENT
  Age: 25913 Day
  Sex: Male
  Weight: 65 kg

DRUGS (3)
  1. IMFINZI [Suspect]
     Active Substance: DURVALUMAB
     Indication: NON-SMALL CELL LUNG CANCER
     Route: 041
     Dates: start: 20210329, end: 20210329
  2. ZETIA [Concomitant]
     Active Substance: EZETIMIBE
     Route: 048
  3. BEZATOL SR [Concomitant]
     Active Substance: BEZAFIBRATE
     Route: 048

REACTIONS (4)
  - Respiratory failure [Unknown]
  - Haemoptysis [Recovering/Resolving]
  - Thrombocytopenia [Recovered/Resolved with Sequelae]
  - Lung disorder [Recovered/Resolved with Sequelae]

NARRATIVE: CASE EVENT DATE: 20210331
